FAERS Safety Report 8556421-9 (Version None)
Quarter: 2012Q3

REPORT INFORMATION
  Report Type: 
  Country: None (occurrence: None)
  Receive Date: 20120801
  Receipt Date: 20120727
  Transmission Date: 20120928
  Serious: Yes (Life-Threatening, Hospitalization, Other)
  Sender: FDA-Public Use
  Company Number: PHHY2012JP006817

PATIENT
  Sex: Male
  Weight: 60 kg

DRUGS (10)
  1. EXJADE [Suspect]
     Indication: IRON OVERLOAD
     Dosage: 500 MG, DAILY
     Route: 048
     Dates: start: 20120106, end: 20120118
  2. EXJADE [Suspect]
     Dosage: 500 MG, DAILY
     Route: 048
     Dates: start: 20120120
  3. PREDNISOLONE [Concomitant]
     Dosage: 12.5 MG, UNK
     Dates: start: 20090119
  4. NEORAL [Concomitant]
     Indication: POLYCHONDRITIS
     Dosage: 125 MG, DAILY
     Route: 048
     Dates: start: 20101028
  5. RABEPRAZOLE SODIUM [Concomitant]
     Route: 048
  6. CALCIUM [Concomitant]
  7. PREDNISOLONE [Concomitant]
     Dosage: 60 MG, UNK
  8. ONEALFA [Concomitant]
     Route: 048
  9. GLAKAY [Concomitant]
     Route: 048
  10. MUCOSTA [Concomitant]
     Indication: POLYCHONDRITIS
     Dosage: 300 MG, UNK
     Route: 048
     Dates: start: 20090116

REACTIONS (33)
  - LUNG DISORDER [None]
  - PNEUMONIA FUNGAL [None]
  - OXYGEN SATURATION DECREASED [None]
  - RENAL IMPAIRMENT [None]
  - BLISTER [None]
  - NAUSEA [None]
  - BLOOD BLISTER [None]
  - PLATELET COUNT DECREASED [None]
  - PULMONARY OEDEMA [None]
  - PURPURA [None]
  - ANAEMIA [None]
  - ORAL MUCOSA EROSION [None]
  - PYREXIA [None]
  - BLOOD LACTATE DEHYDROGENASE INCREASED [None]
  - OROPHARYNGEAL PAIN [None]
  - DISSEMINATED INTRAVASCULAR COAGULATION [None]
  - PNEUMONIA [None]
  - HYPOTENSION [None]
  - SKIN EROSION [None]
  - DRUG ERUPTION [None]
  - RASH [None]
  - STEVENS-JOHNSON SYNDROME [None]
  - PHARYNGEAL EROSION [None]
  - ERYTHEMA [None]
  - DYSPNOEA [None]
  - FIBRIN D DIMER INCREASED [None]
  - PNEUMONIA BACTERIAL [None]
  - CHILLS [None]
  - SKIN MASS [None]
  - SWELLING FACE [None]
  - LIP EROSION [None]
  - SCAB [None]
  - GENITAL EROSION [None]
